FAERS Safety Report 20484021 (Version 1)
Quarter: 2022Q1

REPORT INFORMATION
  Report Type: Spontaneous
  Country: CA (occurrence: None)
  Receive Date: 20220217
  Receipt Date: 20220217
  Transmission Date: 20220424
  Serious: Yes (Life-Threatening, Hospitalization)
  Sender: FDA-Public Use
  Company Number: 2022A071605

PATIENT
  Age: 77 Year
  Sex: Female
  Weight: 54 kg

DRUGS (12)
  1. DAPAGLIFLOZIN [Suspect]
     Active Substance: DAPAGLIFLOZIN
     Indication: Diabetes mellitus
     Route: 048
  2. AMLODIPINE [Concomitant]
     Active Substance: AMLODIPINE BESYLATE
     Route: 065
  3. DEXILANT [Concomitant]
     Active Substance: DEXLANSOPRAZOLE
     Route: 065
  4. GLICLAZIDE [Concomitant]
     Active Substance: GLICLAZIDE
     Route: 065
  5. METFORMIN [Concomitant]
     Active Substance: METFORMIN HYDROCHLORIDE
     Route: 065
  6. OXAZEPAM [Concomitant]
     Active Substance: OXAZEPAM
     Route: 065
  7. OZEMPIC [Concomitant]
     Active Substance: SEMAGLUTIDE
     Route: 058
  8. PERINDOPRIL ERBUMINE [Concomitant]
     Active Substance: PERINDOPRIL ERBUMINE
     Route: 065
  9. PROLIA [Concomitant]
     Active Substance: DENOSUMAB
     Route: 058
  10. QUININE [Concomitant]
     Active Substance: QUININE
     Route: 065
  11. TRAZODONE [Concomitant]
     Active Substance: TRAZODONE HYDROCHLORIDE
     Route: 065
  12. VITAMIN D [Concomitant]
     Active Substance: VITAMIN D NOS
     Route: 065

REACTIONS (1)
  - Euglycaemic diabetic ketoacidosis [Unknown]
